FAERS Safety Report 7821321-6 (Version None)
Quarter: 2011Q4

REPORT INFORMATION
  Report Type: 
  Country: None (occurrence: None)
  Receive Date: 20111018
  Receipt Date: 20101026
  Transmission Date: 20120403
  Serious: No
  Sender: FDA-Public Use
  Company Number: US-ASTRAZENECA-2010SE50771

PATIENT
  Age: 73 Year
  Sex: Male
  Weight: 88.9 kg

DRUGS (11)
  1. METOPROLOL TARTRATE [Concomitant]
     Indication: HYPERTENSION
  2. LISINOPRIL [Concomitant]
     Indication: CARDIAC DISORDER
  3. METFORMIN HCL [Concomitant]
     Indication: DIABETES MELLITUS
  4. DIGOXIN [Concomitant]
     Indication: CARDIAC DISORDER
  5. SYMBICORT [Suspect]
     Dosage: 160/4.5 MCG BID
     Route: 055
     Dates: start: 20100301
  6. GLIBERIDE [Concomitant]
     Indication: DIABETES MELLITUS
  7. METOPROLOL TARTRATE [Concomitant]
     Indication: CARDIAC DISORDER
  8. 2 INSULINS [Concomitant]
     Indication: DIABETES MELLITUS
  9. LISINOPRIL [Concomitant]
     Indication: HYPERTENSION
  10. LOVASTATIN [Concomitant]
     Indication: HYPERCHOLESTEROLAEMIA
  11. TRILIPIX [Concomitant]
     Indication: HYPERCHOLESTEROLAEMIA

REACTIONS (1)
  - DYSPNOEA [None]
